FAERS Safety Report 15061523 (Version 1)
Quarter: 2018Q2

REPORT INFORMATION
  Report Type: Report from Study
  Country: DE (occurrence: DE)
  Receive Date: 20180625
  Receipt Date: 20180625
  Transmission Date: 20180711
  Serious: Yes (Death, Hospitalization)
  Sender: FDA-Public Use
  Company Number: DE-TEVA-2018-DE-912128

PATIENT
  Age: 49 Year
  Sex: Female
  Weight: 58 kg

DRUGS (31)
  1. PACLITAXEL. [Suspect]
     Active Substance: PACLITAXEL
     Route: 065
     Dates: start: 20130301
  2. PACLITAXEL. [Suspect]
     Active Substance: PACLITAXEL
     Route: 065
  3. ONDANSETRON [Concomitant]
     Active Substance: ONDANSETRON
     Indication: VOMITING
  4. NEULASTA [Concomitant]
     Active Substance: PEGFILGRASTIM
     Dosage: ONE DAY AFTER CHEMOTHERAPY
     Route: 058
     Dates: start: 20130302, end: 20130615
  5. CARBOPLATIN. [Suspect]
     Active Substance: CARBOPLATIN
     Route: 065
  6. TAVEGIL [Concomitant]
     Active Substance: CLEMASTINE FUMARATE
     Indication: HYPERSENSITIVITY
     Route: 042
     Dates: start: 20130301, end: 20130614
  7. TAVEGIL [Concomitant]
     Active Substance: CLEMASTINE FUMARATE
     Indication: NAUSEA
  8. IVEMEND [Concomitant]
     Active Substance: FOSAPREPITANT DIMEGLUMINE
     Indication: VOMITING
  9. CARBOPLATIN. [Suspect]
     Active Substance: CARBOPLATIN
     Indication: BREAST CANCER
     Route: 065
  10. PACLITAXEL. [Suspect]
     Active Substance: PACLITAXEL
     Route: 065
     Dates: start: 20130325
  11. BEVACIZUMAB. [Suspect]
     Active Substance: BEVACIZUMAB
     Route: 065
     Dates: start: 20130614
  12. RANITIDIN [Concomitant]
     Active Substance: RANITIDINE HYDROCHLORIDE
     Indication: PROPHYLAXIS AGAINST GASTROINTESTINAL ULCER
     Dosage: ON THE DAY OF CHEMOTHERAPY
     Route: 042
     Dates: start: 20130301, end: 20130614
  13. CARBOPLATIN. [Suspect]
     Active Substance: CARBOPLATIN
     Route: 065
  14. PACLITAXEL. [Suspect]
     Active Substance: PACLITAXEL
     Indication: BREAST CANCER
     Dosage: LAST DOSE PRIOR TO SAE ON 14/JUN/2013
     Route: 065
     Dates: start: 20130301, end: 20130614
  15. PACLITAXEL. [Suspect]
     Active Substance: PACLITAXEL
     Route: 065
     Dates: start: 20130422
  16. BEVACIZUMAB. [Suspect]
     Active Substance: BEVACIZUMAB
     Route: 065
     Dates: start: 20130422
  17. RATIOGRASTIM [Concomitant]
     Active Substance: FILGRASTIM
     Route: 058
     Dates: start: 20130423, end: 20130423
  18. FERINJECT [Concomitant]
     Active Substance: FERRIC CARBOXYMALTOSE
     Indication: ANAEMIA
     Route: 042
     Dates: start: 20130528, end: 20130528
  19. DEXAMETHASON [Concomitant]
     Active Substance: DEXAMETHASONE
     Indication: NAUSEA
     Dosage: ONE DAY BEFORE CHEMOTHERAPY
     Route: 042
     Dates: start: 20130228, end: 20130613
  20. ZOFRAN [Concomitant]
     Active Substance: ONDANSETRON HYDROCHLORIDE
     Indication: VOMITING
     Dosage: ON THE DAY OF CHEMOTHERAPY
     Route: 048
     Dates: start: 20130302, end: 20130616
  21. IVEMEND [Concomitant]
     Active Substance: FOSAPREPITANT DIMEGLUMINE
     Indication: NAUSEA
     Dosage: ON THE DAY OF CHEMOTHERAPY
     Route: 042
     Dates: start: 20130301, end: 20130614
  22. ARANESP [Concomitant]
     Active Substance: DARBEPOETIN ALFA
     Route: 058
     Dates: start: 20130528, end: 20130528
  23. CARBOPLATIN. [Suspect]
     Active Substance: CARBOPLATIN
     Route: 065
     Dates: start: 20130325
  24. CARBOPLATIN. [Suspect]
     Active Substance: CARBOPLATIN
     Dosage: LAST DOSE PRIOR TO SAE ON 14/JUN/2013
     Route: 065
     Dates: start: 20130301, end: 20130614
  25. BEVACIZUMAB. [Suspect]
     Active Substance: BEVACIZUMAB
     Indication: BREAST CANCER
     Dosage: LAST DOSE PRIOR TO SAE ON 14/JUN/2013
     Route: 065
     Dates: start: 20130325, end: 20130614
  26. ONDANSETRON [Concomitant]
     Active Substance: ONDANSETRON
     Indication: NAUSEA
     Dosage: ON THE DAY OF CHEMOTHERAPY
     Route: 042
     Dates: start: 20130301, end: 20130614
  27. CARBOPLATIN. [Suspect]
     Active Substance: CARBOPLATIN
     Route: 065
     Dates: start: 20130422
  28. PACLITAXEL. [Suspect]
     Active Substance: PACLITAXEL
     Route: 065
  29. BEVACIZUMAB. [Suspect]
     Active Substance: BEVACIZUMAB
     Route: 065
     Dates: start: 20130325
  30. DEXAMETHASON [Concomitant]
     Active Substance: DEXAMETHASONE
     Indication: HYPERSENSITIVITY
     Dosage: ONE DAY BEFORE CHEMOTHERAPY
     Route: 042
     Dates: start: 20130301, end: 20130614
  31. NEULASTA [Concomitant]
     Active Substance: PEGFILGRASTIM
     Dosage: ONE DAY AFTER CHEMOTHERAPY
     Route: 058
     Dates: start: 20130528, end: 20130615

REACTIONS (11)
  - Ileus [Fatal]
  - General physical health deterioration [Recovered/Resolved]
  - Febrile neutropenia [Recovered/Resolved]
  - Anaemia [Unknown]
  - Sepsis [Unknown]
  - Bacteraemia [Recovered/Resolved]
  - Hydronephrosis [Recovered/Resolved]
  - Urosepsis [Recovered/Resolved]
  - Sepsis [Recovered/Resolved]
  - Leukopenia [Unknown]
  - Vomiting [Unknown]

NARRATIVE: CASE EVENT DATE: 20130325
